FAERS Safety Report 12950078 (Version 1)
Quarter: 2016Q4

REPORT INFORMATION
  Report Type: Spontaneous
  Country: US (occurrence: US)
  Receive Date: 20161116
  Receipt Date: 20161116
  Transmission Date: 20170207
  Serious: Yes (Hospitalization, Other)
  Sender: FDA-Public Use
  Company Number: US-ENDO PHARMACEUTICALS INC.-2016-005320

PATIENT
  Sex: Female
  Weight: 86.26 kg

DRUGS (20)
  1. PREDNISONE TABLETS [Suspect]
     Active Substance: PREDNISONE
     Indication: SYSTEMIC LUPUS ERYTHEMATOSUS
     Dosage: 40 OR 60MG TABLETS
     Route: 048
     Dates: start: 2000
  2. FIORICET [Concomitant]
     Active Substance: ACETAMINOPHEN\BUTALBITAL\CAFFEINE
     Indication: HEADACHE
     Dosage: 50-325-40MG
     Route: 065
     Dates: start: 1995
  3. NEURONTIN [Concomitant]
     Active Substance: GABAPENTIN
     Indication: MIGRAINE
     Route: 048
     Dates: start: 2001
  4. LANTUS [Suspect]
     Active Substance: INSULIN GLARGINE
     Dosage: INCREASED
     Route: 058
     Dates: start: 2005
  5. NORTRIPTYLINE [Concomitant]
     Active Substance: NORTRIPTYLINE
     Indication: TREMOR
  6. PREDNISONE TABLETS [Suspect]
     Active Substance: PREDNISONE
     Indication: ANTIPHOSPHOLIPID ANTIBODIES
     Route: 065
  7. FLEXERIL [Concomitant]
     Active Substance: CYCLOBENZAPRINE HYDROCHLORIDE
     Indication: MUSCLE RELAXANT THERAPY
  8. STARLIX [Concomitant]
     Active Substance: NATEGLINIDE
     Indication: TREMOR
  9. LANTUS [Suspect]
     Active Substance: INSULIN GLARGINE
     Dosage: DROPPED (DECREASED)
     Route: 058
  10. HUMALOG [Suspect]
     Active Substance: INSULIN LISPRO
     Indication: DIABETES MELLITUS
     Dosage: 8 UNITS AT BREAKFAST, 11 UNITS AT LUNCH AND 12 UNITS AT DINNER
     Route: 058
     Dates: start: 200511
  11. NEURONTIN [Concomitant]
     Active Substance: GABAPENTIN
     Indication: TREMOR
  12. NORTRIPTYLINE [Concomitant]
     Active Substance: NORTRIPTYLINE
     Indication: MIGRAINE
     Route: 065
     Dates: start: 2010
  13. PREDNISONE TABLETS [Suspect]
     Active Substance: PREDNISONE
     Indication: ATRIAL FIBRILLATION
  14. LANTUS [Suspect]
     Active Substance: INSULIN GLARGINE
     Indication: DIABETES MELLITUS
     Dosage: 8 UNITS
     Route: 058
     Dates: start: 200510, end: 2005
  15. REVATIO [Concomitant]
     Active Substance: SILDENAFIL CITRATE
     Indication: PULMONARY HYPERTENSION
     Route: 048
     Dates: start: 200510
  16. STARLIX [Concomitant]
     Active Substance: NATEGLINIDE
     Indication: PRODUCT USED FOR UNKNOWN INDICATION
     Route: 065
  17. PREDNISONE TABLETS [Suspect]
     Active Substance: PREDNISONE
     Indication: THROMBOSIS
     Dosage: 10MG
     Route: 065
  18. HUMALOG [Suspect]
     Active Substance: INSULIN LISPRO
     Dosage: DROPPED (LOWERED)
     Route: 065
  19. FLEXERIL [Concomitant]
     Active Substance: CYCLOBENZAPRINE HYDROCHLORIDE
     Indication: MIGRAINE
     Route: 065
     Dates: start: 2010
  20. CLONIDINE HCL TABLETS [Concomitant]
     Active Substance: CLONIDINE HYDROCHLORIDE
     Indication: MIGRAINE
     Route: 065
     Dates: start: 2010

REACTIONS (8)
  - Diabetes mellitus [Not Recovered/Not Resolved]
  - Oxygen saturation decreased [Not Recovered/Not Resolved]
  - Blood glucose increased [Unknown]
  - Dyspnoea [Not Recovered/Not Resolved]
  - Weight increased [Not Recovered/Not Resolved]
  - Blood cholesterol increased [Not Recovered/Not Resolved]
  - Blood triglycerides increased [Not Recovered/Not Resolved]
  - Cardiac failure [Not Recovered/Not Resolved]

NARRATIVE: CASE EVENT DATE: 2005
